FAERS Safety Report 14511599 (Version 1)
Quarter: 2018Q1

REPORT INFORMATION
  Report Type: Spontaneous
  Country: US (occurrence: US)
  Receive Date: 20180209
  Receipt Date: 20180209
  Transmission Date: 20180509
  Serious: Yes (Disabling, Other)
  Sender: FDA-Public Use
  Company Number: US-REGENERON PHARMACEUTICALS, INC.-2018-12932

PATIENT

DRUGS (2)
  1. EYLEA [Suspect]
     Active Substance: AFLIBERCEPT
     Dosage: UNK, LAST INJECTION
     Dates: start: 20180125, end: 20180125
  2. EYLEA [Suspect]
     Active Substance: AFLIBERCEPT
     Indication: RETINAL VEIN OCCLUSION
     Dosage: UNK
     Dates: start: 20161110

REACTIONS (3)
  - Endophthalmitis [Unknown]
  - Blindness unilateral [Unknown]
  - Intraocular pressure decreased [Unknown]

NARRATIVE: CASE EVENT DATE: 20180126
